FAERS Safety Report 12852925 (Version 1)
Quarter: 2016Q4

REPORT INFORMATION
  Report Type: Spontaneous
  Country: US (occurrence: US)
  Receive Date: 20161017
  Receipt Date: 20161017
  Transmission Date: 20170207
  Serious: Yes (Other)
  Sender: FDA-Public Use
  Company Number: US-GLAXOSMITHKLINE-US2016GSK151146

PATIENT
  Age: 83 Year
  Sex: Female

DRUGS (4)
  1. ADVAIR DISKUS [Suspect]
     Active Substance: FLUTICASONE PROPIONATE\SALMETEROL XINAFOATE
     Indication: CHRONIC OBSTRUCTIVE PULMONARY DISEASE
     Dosage: 500/50 MCG 1 PUFF(S), BID
     Dates: start: 20161012
  2. VALIUM [Concomitant]
     Active Substance: DIAZEPAM
  3. VICODIN [Concomitant]
     Active Substance: ACETAMINOPHEN\HYDROCODONE BITARTRATE
  4. GABAPENTIN. [Concomitant]
     Active Substance: GABAPENTIN

REACTIONS (4)
  - Choking [Recovered/Resolved]
  - Dyspnoea [Recovered/Resolved]
  - Administration site warmth [Recovered/Resolved]
  - Pharyngeal oedema [Unknown]

NARRATIVE: CASE EVENT DATE: 20161012
